FAERS Safety Report 22266941 (Version 1)
Quarter: 2023Q2

REPORT INFORMATION
  Report Type: Spontaneous
  Country: US (occurrence: None)
  Receive Date: 20230427
  Receipt Date: 20230427
  Transmission Date: 20230722
  Serious: No
  Sender: FDA-Public Use
  Company Number: None

PATIENT
  Age: 54 Year
  Sex: Male
  Weight: 94.8 kg

DRUGS (8)
  1. XTANDI [Suspect]
     Active Substance: ENZALUTAMIDE
     Indication: Prostate cancer
     Dosage: 160MG DAILY PO?
     Route: 048
     Dates: start: 20230405
  2. BICALUTAMIDE [Suspect]
     Active Substance: BICALUTAMIDE
     Indication: Prostate cancer
     Dosage: 50MG BID PO
     Route: 048
     Dates: start: 202303
  3. AMLODIPINE [Concomitant]
  4. ATORVASTATIN [Concomitant]
  5. CALCIUM [Concomitant]
     Active Substance: CALCIUM
  6. SEA MOSS [Concomitant]
  7. VALTREX [Concomitant]
  8. VENLAFAXINE [Concomitant]

REACTIONS (2)
  - Infection [None]
  - Therapy interrupted [None]

NARRATIVE: CASE EVENT DATE: 20230421
